FAERS Safety Report 6472452-7 (Version None)
Quarter: 2009Q4

REPORT INFORMATION
  Report Type: 
  Country: None (occurrence: None)
  Receive Date: 20091201
  Receipt Date: 20091117
  Transmission Date: 20100525
  Serious: Yes (Other)
  Sender: FDA-Public Use
  Company Number: 2009US004123

PATIENT
  Age: 54 Year
  Sex: Male

DRUGS (2)
  1. VIBATIV [Suspect]
     Indication: ENDOCARDITIS ENTEROCOCCAL
     Dosage: 1500 MG, UID/QD
     Dates: start: 20091112
  2. STREPTOMYCIN [Concomitant]

REACTIONS (2)
  - BLOOD PRESSURE ABNORMAL [None]
  - RENAL IMPAIRMENT [None]
